FAERS Safety Report 7824635-9 (Version None)
Quarter: 2011Q4

REPORT INFORMATION
  Report Type: 
  Country: None (occurrence: None)
  Receive Date: 20111019
  Receipt Date: 20111007
  Transmission Date: 20120403
  Serious: Yes (Life-Threatening, Hospitalization, Disabling)
  Sender: FDA-Public Use
  Company Number: US-CELGENEUS-163-21880-10042471

PATIENT
  Sex: Female

DRUGS (6)
  1. CARFILZOMIB [Suspect]
     Indication: MULTIPLE MYELOMA
     Dosage: 15 MILLIGRAM/SQ. METER
     Route: 041
     Dates: start: 20081015
  2. OMEPRAZOLE [Concomitant]
     Route: 048
  3. REVLIMID [Suspect]
     Indication: MULTIPLE MYELOMA
     Route: 048
  4. DEXAMETHASONE [Suspect]
     Indication: MULTIPLE MYELOMA
     Route: 065
  5. ASPIRIN [Concomitant]
     Route: 048
  6. VALACICLOVIR [Concomitant]
     Route: 048

REACTIONS (1)
  - SICK SINUS SYNDROME [None]
